FAERS Safety Report 5710492-3 (Version None)
Quarter: 2008Q2

REPORT INFORMATION
  Report Type: 
  Country: None (occurrence: None)
  Receive Date: 20080414
  Receipt Date: 20080410
  Transmission Date: 20081010
  Serious: Yes (Other)
  Sender: FDA-Public Use
  Company Number: 2008SP006824

PATIENT
  Age: 63 Year
  Sex: Male
  Weight: 59 kg

DRUGS (3)
  1. TEMODAL [Suspect]
     Indication: LYMPHOMA
     Dosage: 240 MG;QD;PO
     Route: 048
     Dates: start: 20080104, end: 20080108
  2. METHOTREXATE [Suspect]
     Indication: LYMPHOMA
     Dosage: 6.05 GM; QD; IV
     Route: 042
     Dates: start: 20080104, end: 20080104
  3. SOLU-MEDROL [Suspect]
     Indication: LYMPHOMA
     Dosage: 60 MG;QD;IV
     Route: 042
     Dates: start: 20080104

REACTIONS (1)
  - ALANINE AMINOTRANSFERASE INCREASED [None]
